FAERS Safety Report 15798058 (Version 1)
Quarter: 2019Q1

REPORT INFORMATION
  Report Type: Spontaneous
  Country: US (occurrence: US)
  Receive Date: 20190108
  Receipt Date: 20190108
  Transmission Date: 20190417
  Serious: Yes (Death)
  Sender: FDA-Public Use
  Company Number: US-PFIZER INC-2019009728

PATIENT
  Age: 56 Year
  Sex: Male

DRUGS (3)
  1. HEROIN [Suspect]
     Active Substance: DIAMORPHINE
     Dosage: UNK
     Route: 065
  2. METHAMPHETAMINE HCL [Suspect]
     Active Substance: METHAMPHETAMINE HYDROCHLORIDE
     Dosage: UNK
     Route: 065
  3. ALPRAZOLAM. [Suspect]
     Active Substance: ALPRAZOLAM
     Dosage: UNK
     Route: 065

REACTIONS (1)
  - Drug abuse [Fatal]

NARRATIVE: CASE EVENT DATE: 2017
